FAERS Safety Report 24668653 (Version 2)
Quarter: 2025Q2

REPORT INFORMATION
  Report Type: Spontaneous
  Country: US (occurrence: US)
  Receive Date: 20241127
  Receipt Date: 20250410
  Transmission Date: 20250716
  Serious: No
  Sender: LUPIN
  Company Number: US-LUPIN PHARMACEUTICALS INC.-2024-11364

PATIENT

DRUGS (2)
  1. ALBUTEROL SULFATE [Suspect]
     Active Substance: ALBUTEROL SULFATE
     Indication: Respiratory tract congestion
  2. ALBUTEROL SULFATE [Suspect]
     Active Substance: ALBUTEROL SULFATE
     Indication: Obstructive airways disorder

REACTIONS (5)
  - Heart rate increased [Unknown]
  - Dyspnoea [Unknown]
  - Tremor [Unknown]
  - Product substitution issue [Unknown]
  - Off label use [Unknown]
